FAERS Safety Report 10287328 (Version 1)
Quarter: 2014Q3

REPORT INFORMATION
  Report Type: Report from Study
  Country: US (occurrence: US)
  Receive Date: 20140709
  Receipt Date: 20140709
  Transmission Date: 20150326
  Serious: Yes (Hospitalization, Other)
  Sender: FDA-Public Use
  Company Number: US-TEVA-492464USA

PATIENT
  Age: 79 Year
  Sex: Male
  Weight: 67.65 kg

DRUGS (11)
  1. PROVENGE [Suspect]
     Active Substance: SIPULEUCEL-T
     Indication: PROSTATE CANCER
     Dosage: SUSPENSION
     Route: 042
     Dates: start: 20121005, end: 20121005
  2. PROVENGE [Suspect]
     Active Substance: SIPULEUCEL-T
     Route: 042
     Dates: start: 20121019, end: 20121019
  3. FINASTERIDE. [Concomitant]
     Active Substance: FINASTERIDE
  4. PROCET [Concomitant]
     Active Substance: ACETAMINOPHEN\HYDROCODONE BITARTRATE
  5. PREDNISONE. [Concomitant]
     Active Substance: PREDNISONE
  6. PROVENGE [Suspect]
     Active Substance: SIPULEUCEL-T
     Route: 042
     Dates: start: 20121109, end: 20121109
  7. TAMSULOSIN [Concomitant]
     Active Substance: TAMSULOSIN
  8. PARACETAMOL [Concomitant]
     Active Substance: ACETAMINOPHEN
  9. KETOCONAZOLE. [Suspect]
     Active Substance: KETOCONAZOLE
     Dosage: 600 MILLIGRAM DAILY; TAKE 2
  10. LEUPRORELIN [Concomitant]
     Active Substance: LEUPROLIDE ACETATE
  11. TRIAMCINOLONE ACETONIDE. [Concomitant]
     Active Substance: TRIAMCINOLONE ACETONIDE

REACTIONS (3)
  - Renal failure chronic [Unknown]
  - Deep vein thrombosis [Unknown]
  - Sinusitis [Unknown]

NARRATIVE: CASE EVENT DATE: 20130805
